FAERS Safety Report 8083294-3 (Version None)
Quarter: 2012Q1

REPORT INFORMATION
  Report Type: 
  Country: None (occurrence: None)
  Receive Date: 20120127
  Receipt Date: 20110309
  Transmission Date: 20120608
  Serious: No
  Sender: FDA-Public Use
  Company Number: US-ABBOTT-11P-163-0710630-00

PATIENT
  Age: 70 Year
  Sex: Female

DRUGS (3)
  1. ASACOL [Concomitant]
     Indication: PRODUCT USED FOR UNKNOWN INDICATION
  2. PREDNISONE TAB [Concomitant]
     Indication: PRODUCT USED FOR UNKNOWN INDICATION
  3. HUMIRA [Suspect]
     Indication: CROHN'S DISEASE
     Dosage: DUE ON 09 MAR 2011
     Dates: start: 20110309

REACTIONS (3)
  - FEELING ABNORMAL [None]
  - DYSPHAGIA [None]
  - PAIN [None]
